FAERS Safety Report 17676765 (Version 9)
Quarter: 2022Q3

REPORT INFORMATION
  Report Type: Report from Study
  Country: CA (occurrence: CA)
  Receive Date: 20200416
  Receipt Date: 20220708
  Transmission Date: 20221027
  Serious: Yes (Hospitalization, Other)
  Sender: FDA-Public Use
  Company Number: CA-GLAXOSMITHKLINE-CA2020AMR063821

PATIENT

DRUGS (3)
  1. MEPOLIZUMAB [Suspect]
     Active Substance: MEPOLIZUMAB
     Indication: Asthma
     Dosage: 100 MG, Z, MONTHLY
     Dates: start: 20190426
  2. MEPOLIZUMAB [Suspect]
     Active Substance: MEPOLIZUMAB
     Dosage: 100 MG, Z
     Dates: start: 20200415
  3. MEPOLIZUMAB [Suspect]
     Active Substance: MEPOLIZUMAB
     Dosage: 100 MG, Z
     Route: 058
     Dates: start: 20190426

REACTIONS (21)
  - Pneumonia [Unknown]
  - Gait disturbance [Unknown]
  - Paraplegia [Unknown]
  - Spinal fracture [Unknown]
  - Spinal cord injury [Unknown]
  - Wound infection [Unknown]
  - Adrenal insufficiency [Unknown]
  - Pain [Unknown]
  - Multimorbidity [Unknown]
  - Back pain [Unknown]
  - Asthma [Unknown]
  - Dyspnoea [Unknown]
  - Wheezing [Unknown]
  - Gait inability [Unknown]
  - Skin ulcer [Unknown]
  - Cellulite [Unknown]
  - Osteoporosis [Unknown]
  - Paraesthesia [Unknown]
  - Poor peripheral circulation [Unknown]
  - Loss of personal independence in daily activities [Unknown]
  - Inappropriate schedule of product administration [Unknown]

NARRATIVE: CASE EVENT DATE: 20200521
